FAERS Safety Report 18269352 (Version 1)
Quarter: 2020Q3

REPORT INFORMATION
  Report Type: Report from Study
  Country: US (occurrence: US)
  Receive Date: 20200915
  Receipt Date: 20200915
  Transmission Date: 20201103
  Serious: Yes (Other)
  Sender: FDA-Public Use
  Company Number: US-JNJFOC-20200628549

PATIENT
  Sex: Female

DRUGS (3)
  1. STELARA [Suspect]
     Active Substance: USTEKINUMAB
     Indication: CROHN^S DISEASE
     Route: 058
  2. STELARA [Suspect]
     Active Substance: USTEKINUMAB
     Indication: CROHN^S DISEASE
     Route: 058
     Dates: start: 20200227
  3. STELARA [Suspect]
     Active Substance: USTEKINUMAB

REACTIONS (5)
  - Inappropriate schedule of product administration [Unknown]
  - Crohn^s disease [Recovering/Resolving]
  - Headache [Unknown]
  - Arthralgia [Unknown]
  - Myalgia [Unknown]
